FAERS Safety Report 5738480-1 (Version None)
Quarter: 2008Q2

REPORT INFORMATION
  Report Type: 
  Country: None (occurrence: None)
  Receive Date: 20080513
  Receipt Date: 20080429
  Transmission Date: 20081010
  Serious: Yes (Death)
  Sender: FDA-Public Use
  Company Number: 2008US000776

PATIENT
  Age: 94 Year
  Sex: Female

DRUGS (5)
  1. VESICARE [Suspect]
     Indication: DRUG USE FOR UNKNOWN INDICATION
     Dosage: 5 MG, UID/QD, ORAL
     Route: 048
     Dates: start: 20080124
  2. MORPHINE [Suspect]
     Indication: DRUG USE FOR UNKNOWN INDICATION
     Dosage: 20 MG/ML, PM
  3. DUONEB (IRATROPIUM BROMIDE, SALBUTAMOL SULFATE) [Concomitant]
  4. PULMICORT [Concomitant]
  5. SYNTHROID [Concomitant]

REACTIONS (5)
  - CHRONIC OBSTRUCTIVE PULMONARY DISEASE [None]
  - DEPRESSED LEVEL OF CONSCIOUSNESS [None]
  - DRUG ADMINISTRATION ERROR [None]
  - SEDATION [None]
  - WRONG TECHNIQUE IN DRUG USAGE PROCESS [None]
